FAERS Safety Report 18830840 (Version 1)
Quarter: 2021Q1

REPORT INFORMATION
  Report Type: Report from Study
  Country: None (occurrence: US)
  Receive Date: 20210203
  Receipt Date: 20210203
  Transmission Date: 20210419
  Serious: Yes (Hospitalization, Other)
  Sender: FDA-Public Use
  Company Number: US-ABBVIE-20K-163-3600922-00

PATIENT
  Sex: Female

DRUGS (3)
  1. IMBRUVICA [Suspect]
     Active Substance: IBRUTINIB
     Indication: CHRONIC LYMPHOCYTIC LEUKAEMIA
     Route: 048
     Dates: start: 201701
  2. IMBRUVICA [Suspect]
     Active Substance: IBRUTINIB
     Indication: CHRONIC LYMPHOCYTIC LEUKAEMIA
     Route: 048
     Dates: start: 201808
  3. IMBRUVICA [Suspect]
     Active Substance: IBRUTINIB
     Indication: B-CELL SMALL LYMPHOCYTIC LYMPHOMA

REACTIONS (14)
  - Haematuria [Unknown]
  - Contusion [Not Recovered/Not Resolved]
  - Visual impairment [Unknown]
  - Feeling abnormal [Unknown]
  - Protein total decreased [Not Recovered/Not Resolved]
  - Intracranial aneurysm [Unknown]
  - Vision blurred [Unknown]
  - Cerebral haemorrhage [Unknown]
  - Herpes zoster [Unknown]
  - Blood glucose increased [Not Recovered/Not Resolved]
  - Myocardial infarction [Unknown]
  - Blood pressure increased [Unknown]
  - Product packaging issue [Unknown]
  - Post herpetic neuralgia [Unknown]

NARRATIVE: CASE EVENT DATE: 2020
